FAERS Safety Report 15373109 (Version 1)
Quarter: 2018Q3

REPORT INFORMATION
  Report Type: Spontaneous
  Country: FR (occurrence: FR)
  Receive Date: 20180912
  Receipt Date: 20180912
  Transmission Date: 20181010
  Serious: Yes (Hospitalization)
  Sender: FDA-Public Use
  Company Number: FR-TEVA-2018-FR-953801

PATIENT
  Age: 65 Year
  Sex: Female
  Weight: 62 kg

DRUGS (26)
  1. OXYCONTIN [Concomitant]
     Active Substance: OXYCODONE HYDROCHLORIDE
     Dosage: 2 DOSAGE FORMS DAILY; (5)
  2. FORLAX [Concomitant]
     Active Substance: POLYETHYLENE GLYCOL 4000
     Dosage: 2 DOSAGE FORMS DAILY; 20 UNK (10X2),
     Route: 065
  3. STAGID [Concomitant]
     Active Substance: METFORMIN PAMOATE
     Dosage: 3 DOSAGE FORMS DAILY; (700)
  4. METHOTREXATE SODIUM. [Suspect]
     Active Substance: METHOTREXATE SODIUM
     Route: 037
     Dates: start: 20150227, end: 20150227
  5. ARACYTINE [Suspect]
     Active Substance: CYTARABINE
     Dosage: ONE INFUSION EVERY 12 HOURS UNTIL 05MAR2015, 4 INFUSIONS IN TOTAL
     Route: 042
     Dates: start: 20150303, end: 20150305
  6. CRESTOR [Concomitant]
     Active Substance: ROSUVASTATIN CALCIUM
     Dosage: 1 DOSAGE FORMS DAILY;
  7. CALCIDOSE VITAMINE D [Concomitant]
     Active Substance: CALCIUM\CHOLECALCIFEROL
     Dosage: 1 DOSAGE FORMS DAILY;
  8. VANCOMYCIN [Concomitant]
     Active Substance: VANCOMYCIN
     Dosage: UNK
     Dates: start: 20141003
  9. ARACYTINE [Suspect]
     Active Substance: CYTARABINE
     Indication: DIFFUSE LARGE B-CELL LYMPHOMA
     Dosage: 30 MILLIGRAM DAILY;
     Route: 037
     Dates: start: 20150227, end: 20150325
  10. ARACYTINE [Suspect]
     Active Substance: CYTARABINE
     Dosage: ONE INFUSION EVERY 12 HOURS, 4 INFUSIONS IN TOTAL
     Route: 042
     Dates: start: 20150303, end: 20150327
  11. MABTHERA [Suspect]
     Active Substance: RITUXIMAB
     Indication: DIFFUSE LARGE B-CELL LYMPHOMA
     Dosage: 610 MILLIGRAM DAILY;
     Route: 042
     Dates: start: 20150324, end: 20150324
  12. LYRICA [Concomitant]
     Active Substance: PREGABALIN
     Dosage: 2 DOSAGE FORMS DAILY; (150)
  13. METHOTREXATE SODIUM. [Suspect]
     Active Substance: METHOTREXATE SODIUM
     Indication: METASTASES TO MENINGES
     Dosage: 4900 MILLIGRAM DAILY;
     Route: 042
     Dates: start: 20150303, end: 20150325
  14. MABTHERA [Suspect]
     Active Substance: RITUXIMAB
     Route: 042
     Dates: start: 20150302, end: 20150324
  15. LOVENOX [Concomitant]
     Active Substance: ENOXAPARIN SODIUM
     Dosage: 0.4 UNK, UNK FOR 1 MONTH
  16. JANUVIA [Concomitant]
     Active Substance: SITAGLIPTIN PHOSPHATE
     Dosage: 1 DOSAGE FORMS DAILY; (100)
  17. DOLIPRANE [Concomitant]
     Active Substance: ACETAMINOPHEN
     Dosage: 3 DOSAGE FORMS DAILY; (1000)
  18. METHOTREXATE SODIUM. [Suspect]
     Active Substance: METHOTREXATE SODIUM
     Route: 037
     Dates: start: 20150227, end: 20150325
  19. METHOTREXATE SODIUM. [Suspect]
     Active Substance: METHOTREXATE SODIUM
     Dosage: 5000 MG, UNK
     Route: 042
     Dates: start: 20150303, end: 20150325
  20. ARACYTINE [Suspect]
     Active Substance: CYTARABINE
     Indication: METASTASES TO MENINGES
     Dosage: 30 MILLIGRAM DAILY;
     Route: 037
     Dates: start: 20150325, end: 20150325
  21. DIAMICRON [Concomitant]
     Active Substance: GLICLAZIDE
     Dosage: 2 DOSAGE FORMS DAILY; (60X2)
  22. ECONAZOLE [Concomitant]
     Active Substance: ECONAZOLE
     Dosage: UNK
  23. LANTUS [Concomitant]
     Active Substance: INSULIN GLARGINE
     Dosage: 20 IU (INTERNATIONAL UNIT) DAILY;
  24. UVEDOSE [Concomitant]
     Active Substance: CHOLECALCIFEROL
     Dosage: 100000 UNK, UNK
     Route: 065
  25. PRIMPERAN [Concomitant]
     Active Substance: METOCLOPRAMIDE HYDROCHLORIDE
     Dosage: 3 DOSAGE FORMS DAILY;  (10)
  26. HYTACAND [Concomitant]
     Active Substance: CANDESARTAN CILEXETIL\HYDROCHLOROTHIAZIDE
     Dosage: 1 DOSAGE FORMS DAILY;  (8/12.5)

REACTIONS (3)
  - Aphasia [Not Recovered/Not Resolved]
  - Osmotic demyelination syndrome [Not Recovered/Not Resolved]
  - Altered state of consciousness [Not Recovered/Not Resolved]

NARRATIVE: CASE EVENT DATE: 20150406
